FAERS Safety Report 4827015-3 (Version None)
Quarter: 2005Q4

REPORT INFORMATION
  Report Type: 
  Country: None (occurrence: None)
  Receive Date: 20051014
  Receipt Date: 20050725
  Transmission Date: 20060501
  Serious: No
  Sender: FDA-Public Use
  Company Number: 2005SP002051

PATIENT
  Age: 50 Year
  Sex: Female
  Weight: 86.1834 kg

DRUGS (7)
  1. LUNESTA [Suspect]
     Indication: INSOMNIA
     Dosage: 6 MG; HS; ORAL
     Route: 048
     Dates: start: 20050718, end: 20050723
  2. HYDROCHLOROTHIAZIDE [Concomitant]
  3. DEMEROL [Concomitant]
  4. PAXIL [Concomitant]
  5. PRAVACHOL [Concomitant]
  6. GLUCOPHAGE [Concomitant]
  7. WELLBUTRIN [Concomitant]

REACTIONS (6)
  - DRUG INEFFECTIVE [None]
  - DYSGEUSIA [None]
  - DYSPHONIA [None]
  - INSOMNIA [None]
  - OESOPHAGEAL DISORDER [None]
  - PALATAL DISORDER [None]
